FAERS Safety Report 8842043 (Version 3)
Quarter: 2013Q1

REPORT INFORMATION
  Report Type: Report from Study
  Country: FR (occurrence: FR)
  Receive Date: 20121016
  Receipt Date: 20130122
  Transmission Date: 20140127
  Serious: Yes (Other)
  Sender: FDA-Public Use
  Company Number: FR-PFIZER INC-2012250516

PATIENT
  Age: 21 Year
  Sex: Female
  Weight: 37 kg

DRUGS (2)
  1. CRIZOTINIB [Suspect]
     Indication: INFLAMMATORY MYOFIBROBLASTIC TUMOUR
     Dosage: 250 MG, 2X/DAY
     Route: 048
     Dates: start: 20120203
  2. KEPPRA [Concomitant]
     Dosage: 100 MG, 2X/DAY

REACTIONS (5)
  - Leukopenia [Not Recovered/Not Resolved]
  - Neutrophil count abnormal [Unknown]
  - Transaminases increased [Recovered/Resolved]
  - Haemoglobin decreased [Recovered/Resolved]
  - Platelet count decreased [Recovered/Resolved]
